FAERS Safety Report 8826542 (Version 2)
Quarter: 2012Q4

REPORT INFORMATION
  Report Type: 
  Country: IL (occurrence: IL)
  Receive Date: 20121005
  Receipt Date: 20121018
  Transmission Date: 20130627
  Serious: Yes (Other)
  Sender: FDA-Public Use
  Company Number: PHHY2012IL084965

PATIENT
  Age: 58 Year
  Sex: Male

DRUGS (5)
  1. CARBAMAZEPINE [Suspect]
     Indication: GRAND MAL CONVULSION
  2. OMEPRAZOLE [Interacting]
     Indication: PEPTIC ULCER
  3. CLARITHROMYCIN [Interacting]
     Indication: PEPTIC ULCER
  4. PHENYTOIN [Concomitant]
     Indication: GRAND MAL CONVULSION
  5. AMOXICILLIN [Concomitant]
     Indication: PEPTIC ULCER

REACTIONS (4)
  - Toxicity to various agents [Unknown]
  - Drug interaction [Unknown]
  - Vertigo [Recovered/Resolved]
  - Ataxia [Recovered/Resolved]
